FAERS Safety Report 23302389 (Version 2)
Quarter: 2024Q1

REPORT INFORMATION
  Report Type: Spontaneous
  Country: US (occurrence: US)
  Receive Date: 20231215
  Receipt Date: 20240105
  Transmission Date: 20240410
  Serious: Yes (Other)
  Sender: FDA-Public Use
  Company Number: US-PFIZER INC-202300442801

PATIENT
  Age: 66 Year
  Sex: Female

DRUGS (1)
  1. IBRANCE [Suspect]
     Active Substance: PALBOCICLIB
     Dosage: 125 MG, CYCLIC ( THREE WEEK OF THE IBRANCE AND THEN I TOOK WEEK OFF)

REACTIONS (5)
  - Hypotension [Recovering/Resolving]
  - Diarrhoea [Not Recovered/Not Resolved]
  - Rash [Unknown]
  - Dry mouth [Unknown]
  - Malaise [Not Recovered/Not Resolved]

NARRATIVE: CASE EVENT DATE: 20231201
